FAERS Safety Report 9596063 (Version 1)
Quarter: 2013Q4

REPORT INFORMATION
  Report Type: Spontaneous
  Country: US (occurrence: US)
  Receive Date: 20131004
  Receipt Date: 20131004
  Transmission Date: 20140711
  Serious: No
  Sender: FDA-Public Use
  Company Number: US-009507513-1310USA001933

PATIENT
  Sex: 0

DRUGS (2)
  1. MIRALAX [Suspect]
     Indication: CONSTIPATION
     Dosage: 17 G, QD
     Route: 048
  2. MIRALAX [Suspect]
     Dosage: 34 G, ONCE
     Route: 048

REACTIONS (2)
  - Overdose [Unknown]
  - Drug ineffective [Unknown]
